FAERS Safety Report 5244788-9 (Version None)
Quarter: 2007Q1

REPORT INFORMATION
  Report Type: 
  Country: None (occurrence: None)
  Receive Date: 20061201
  Receipt Date: 20060813
  Transmission Date: 20070707
  Serious: No
  Sender: FDA-Public Use
  Company Number: 2006PV019312

PATIENT
  Age: 57 Year
  Sex: Male
  Weight: 172.3669 kg

DRUGS (5)
  1. BYETTA [Suspect]
     Indication: DIABETES MELLITUS NON-INSULIN-DEPENDENT
     Dosage: 5 MCG;BID;SC
     Route: 058
     Dates: start: 20060701
  2. AVANDIA [Concomitant]
  3. METFORMIN [Concomitant]
  4. KEFLEX [Concomitant]
  5. AUGMENTIN '125' [Concomitant]

REACTIONS (3)
  - ANGINA PECTORIS [None]
  - CHEST DISCOMFORT [None]
  - FURUNCLE [None]
